FAERS Safety Report 8057199-8 (Version None)
Quarter: 2012Q1

REPORT INFORMATION
  Report Type: 
  Country: None (occurrence: None)
  Receive Date: 20120119
  Receipt Date: 20120112
  Transmission Date: 20120608
  Serious: Yes (Death)
  Sender: FDA-Public Use
  Company Number: PHHY2011DE111459

PATIENT
  Sex: Male
  Weight: 100 kg

DRUGS (5)
  1. FENISTIL [Concomitant]
     Dosage: 4 MG, UNK
     Dates: start: 20110125, end: 20110222
  2. RANITIDINE HCL [Concomitant]
     Dosage: 50 MG, UNK
     Dates: start: 20110125, end: 20110222
  3. ZOMETA [Suspect]
     Indication: BONE DISORDER
     Dosage: 4 MG EVERY 4 WEEKS
     Route: 042
     Dates: start: 20110125
  4. ZOMETA [Suspect]
     Dosage: 4 MG EVERY 4 WEEKS
     Route: 042
     Dates: end: 20110222
  5. TORISEL [Concomitant]
     Dosage: 25 MG, 6 CYCLES
     Dates: start: 20110115, end: 20110222

REACTIONS (2)
  - SEPSIS [None]
  - FEMUR FRACTURE [None]
